FAERS Safety Report 13903844 (Version 1)
Quarter: 2017Q3

REPORT INFORMATION
  Report Type: Report from Study
  Country: US (occurrence: US)
  Receive Date: 20170824
  Receipt Date: 20170824
  Transmission Date: 20171127
  Serious: Yes (Other)
  Sender: FDA-Public Use
  Company Number: US-GILEAD-2017-0289665

PATIENT
  Age: 62 Year
  Sex: Male

DRUGS (1)
  1. IDELALISIB [Suspect]
     Active Substance: IDELALISIB
     Indication: MARGINAL ZONE LYMPHOMA
     Dosage: 150 MG, BID
     Route: 048
     Dates: start: 20141028, end: 20160601

REACTIONS (3)
  - Hernia [Unknown]
  - Malignant pleural effusion [Unknown]
  - Splenectomy [Unknown]

NARRATIVE: CASE EVENT DATE: 20170814
